FAERS Safety Report 14700353 (Version 1)
Quarter: 2018Q1

REPORT INFORMATION
  Report Type: Report from Study
  Country: US (occurrence: US)
  Receive Date: 20180330
  Receipt Date: 20180330
  Transmission Date: 20180509
  Serious: Yes (Disabling, Other)
  Sender: FDA-Public Use
  Company Number: US-JNJFOC-20161128418

PATIENT
  Age: 71 Year
  Sex: Female

DRUGS (16)
  1. IMBRUVICA [Suspect]
     Active Substance: IBRUTINIB
     Indication: CHRONIC LYMPHOCYTIC LEUKAEMIA
     Route: 048
  2. CALCIUM + MAGNESIUM + ZINK [Concomitant]
  3. GLUCOSAMINE [Concomitant]
     Active Substance: GLUCOSAMINE
  4. TOCOPHEROL [Concomitant]
     Active Substance: TOCOPHEROL
  5. EVISTA [Concomitant]
     Active Substance: RALOXIFENE HYDROCHLORIDE
  6. VITAMIN C [Concomitant]
     Active Substance: ASCORBIC ACID
  7. ACYCLOVIR. [Concomitant]
     Active Substance: ACYCLOVIR
  8. LYSINE [Concomitant]
     Active Substance: LYSINE
  9. DIPHENHYDRAMINE. [Concomitant]
     Active Substance: DIPHENHYDRAMINE
  10. IMBRUVICA [Suspect]
     Active Substance: IBRUTINIB
     Indication: CHRONIC LYMPHOCYTIC LEUKAEMIA
     Route: 048
     Dates: start: 20161031
  11. MULTIVITAMINS [Concomitant]
     Active Substance: VITAMINS
  12. FISH OIL [Concomitant]
     Active Substance: FISH OIL
  13. LEVOTHYROXINE. [Concomitant]
     Active Substance: LEVOTHYROXINE
  14. IMBRUVICA [Suspect]
     Active Substance: IBRUTINIB
     Indication: CHRONIC LYMPHOCYTIC LEUKAEMIA
     Dosage: 420 MG, QD
     Route: 048
     Dates: start: 20161018
  15. IMBRUVICA [Suspect]
     Active Substance: IBRUTINIB
     Indication: CHRONIC LYMPHOCYTIC LEUKAEMIA
     Route: 048
  16. IMBRUVICA [Suspect]
     Active Substance: IBRUTINIB
     Indication: CHRONIC LYMPHOCYTIC LEUKAEMIA
     Route: 048
     Dates: start: 20170125

REACTIONS (27)
  - Meniscus injury [Recovering/Resolving]
  - Globulins decreased [Not Recovered/Not Resolved]
  - Immunoglobulins decreased [Unknown]
  - Lymphocyte count increased [Recovering/Resolving]
  - Arthralgia [Not Recovered/Not Resolved]
  - Red blood cell count increased [Recovered/Resolved]
  - Mucous stools [Not Recovered/Not Resolved]
  - White blood cell count increased [Recovered/Resolved]
  - Myalgia [Not Recovered/Not Resolved]
  - Petechiae [Not Recovered/Not Resolved]
  - Haemangioma of skin [Not Recovered/Not Resolved]
  - Fall [Not Recovered/Not Resolved]
  - Face injury [Not Recovered/Not Resolved]
  - Nail growth abnormal [Not Recovered/Not Resolved]
  - Back pain [Not Recovered/Not Resolved]
  - Skin discolouration [Unknown]
  - Laceration [Not Recovered/Not Resolved]
  - Weight increased [Not Recovered/Not Resolved]
  - Dyspepsia [Not Recovered/Not Resolved]
  - Contusion [Not Recovered/Not Resolved]
  - Memory impairment [Unknown]
  - Impaired healing [Not Recovered/Not Resolved]
  - Neck pain [Recovered/Resolved]
  - Skin abrasion [Not Recovered/Not Resolved]
  - Drug dose omission [Unknown]
  - Diarrhoea [Not Recovered/Not Resolved]
  - Onychoclasis [Recovering/Resolving]

NARRATIVE: CASE EVENT DATE: 201611
